FAERS Safety Report 5722620-4 (Version None)
Quarter: 2008Q2

REPORT INFORMATION
  Report Type: 
  Country: None (occurrence: None)
  Receive Date: 20080429
  Receipt Date: 20070821
  Transmission Date: 20081010
  Serious: No
  Sender: FDA-Public Use
  Company Number: US-ASTRAZENECA-2007UW20036

PATIENT
  Age: 53 Year
  Sex: Female
  Weight: 65.8 kg

DRUGS (1)
  1. NEXIUM [Suspect]
     Indication: GASTROINTESTINAL ULCER
     Route: 048

REACTIONS (2)
  - GINGIVAL BLEEDING [None]
  - SWELLING FACE [None]
